FAERS Safety Report 10272804 (Version 1)
Quarter: 2014Q2

REPORT INFORMATION
  Report Type: Spontaneous
  Country: US (occurrence: None)
  Receive Date: 20140630
  Receipt Date: 20140630
  Transmission Date: 20141212
  Serious: Yes (Hospitalization)
  Sender: FDA-Public Use
  Company Number: UNT-2014-002642

PATIENT
  Age: 70 Year
  Sex: Female
  Weight: 60.8 kg

DRUGS (4)
  1. REMODULIN (TREPROSTINIL SODIUM) INJECTION, 5MG/ML [Suspect]
     Indication: COR PULMONALE CHRONIC
     Dosage: CONTINUING
     Route: 058
     Dates: start: 20120628
  2. COUMADIN (WARFARIN) UNKNOWN [Concomitant]
  3. REVATIO (SILDENAFIL CITRATE) UKNOWN [Concomitant]
  4. OPSUMIT (MACITENTAN) UNKNOWN [Concomitant]

REACTIONS (3)
  - Gastrointestinal haemorrhage [None]
  - Pneumonia [None]
  - Dyspnoea [None]
